FAERS Safety Report 8291414-0 (Version None)
Quarter: 2012Q2

REPORT INFORMATION
  Report Type: 
  Country: None (occurrence: None)
  Receive Date: 20120417
  Receipt Date: 20120410
  Transmission Date: 20120825
  Serious: Yes (Other)
  Sender: FDA-Public Use
  Company Number: JP-GLAXOSMITHKLINE-B0795395A

PATIENT
  Age: 70 Year
  Sex: Male

DRUGS (4)
  1. PAXIL [Suspect]
     Dosage: 30MG PER DAY
     Route: 048
  2. PAXIL [Suspect]
     Dosage: 20MG PER DAY
     Route: 048
  3. PAXIL [Suspect]
     Indication: DEPRESSION
     Dosage: 40MG PER DAY
     Route: 048
     Dates: start: 20050101
  4. PAXIL [Suspect]
     Dosage: 10MG PER DAY
     Route: 048
     Dates: end: 20120301

REACTIONS (3)
  - MANIA [None]
  - EUPHORIC MOOD [None]
  - DRUG WITHDRAWAL SYNDROME [None]
